FAERS Safety Report 7464911-5 (Version None)
Quarter: 2011Q2

REPORT INFORMATION
  Report Type: 
  Country: None (occurrence: None)
  Receive Date: 20110509
  Receipt Date: 20110329
  Transmission Date: 20111010
  Serious: Yes (Hospitalization, Other)
  Sender: FDA-Public Use
  Company Number: US-BAYER-201022989NA

PATIENT
  Age: 36 Year
  Sex: Female
  Weight: 119.73 kg

DRUGS (13)
  1. ACETAMINOPHEN [Concomitant]
     Dosage: 325 MG, UNK
     Dates: start: 20090609
  2. SENOKOT [Concomitant]
     Dosage: UNK
     Dates: start: 20090609
  3. ZOLPIDEM [Concomitant]
     Dosage: 5 MG, UNK
     Dates: start: 20090609
  4. YASMIN [Suspect]
     Indication: PRODUCT USED FOR UNKNOWN INDICATION
     Dosage: UNK
     Route: 048
     Dates: start: 20080801, end: 20081015
  5. IBUPROFEN [Concomitant]
     Dosage: 600 MG, UNK
     Dates: start: 20090609
  6. FERROUS SULFATE TAB [Concomitant]
  7. PROMETHAZINE - CODEINE [CITRIC AC,CODEINE,PROMETHAZ,NA+ CITR AC,SULFOG [Concomitant]
     Dosage: 25 MG, UNK
     Dates: start: 20090609
  8. DROSPIRENONE AND ETHINYL ESTRADIOL [Suspect]
     Indication: PRODUCT USED FOR UNKNOWN INDICATION
     Dosage: UNK
     Route: 048
     Dates: start: 20081101, end: 20091115
  9. POTASSIUM [POTASSIUM] [Concomitant]
  10. OXYCODONE [Concomitant]
     Dosage: 5 MG, UNK
     Dates: start: 20090609, end: 20090616
  11. SIMETHICONE [Concomitant]
     Dosage: 80 MG, UNK
     Dates: start: 20090609
  12. M-M-R II [Concomitant]
     Dosage: 0.5 ML, UNK
     Dates: start: 20090609
  13. IMMUNE GLOBULIN NOS [Concomitant]
     Dosage: 300 MCG/24HR, UNK
     Dates: start: 20090609

REACTIONS (4)
  - CHOLELITHIASIS [None]
  - HYPERTENSION [None]
  - CHOLECYSTITIS CHRONIC [None]
  - GALLBLADDER DISORDER [None]
